FAERS Safety Report 24333151 (Version 2)
Quarter: 2024Q4

REPORT INFORMATION
  Report Type: Spontaneous
  Country: FR (occurrence: FR)
  Receive Date: 20240918
  Receipt Date: 20241008
  Transmission Date: 20250114
  Serious: Yes (Hospitalization)
  Sender: PFIZER
  Company Number: FR-ROCHE-3534313

PATIENT
  Age: 68 Year
  Sex: Male

DRUGS (4)
  1. PACLITAXEL [Suspect]
     Active Substance: PACLITAXEL
     Indication: Non-small cell lung cancer
     Dosage: 200 MG/M2 EVERY 3 WEEKS DATE OF LAST ADMINISTRATION OF STUDY TREATMENT 14MAR2024
     Route: 042
     Dates: start: 20240131
  2. BEVACIZUMAB [Suspect]
     Active Substance: BEVACIZUMAB
     Indication: Non-small cell lung cancer
     Dosage: 15 MG/KG EVERY 3 WEEKS DATE OF LAST ADMINISTRATION OF STUDY TREATMENT 14MAR2024
     Route: 042
     Dates: start: 20240131
  3. ATEZOLIZUMAB [Suspect]
     Active Substance: ATEZOLIZUMAB
     Indication: Non-small cell lung cancer
     Dosage: 1200 MG EVERY 3 WEEKS DATE OF LAST ADMINISTRATION OF STUDY TREATMENT 14MAR2024
     Route: 042
     Dates: start: 20240131
  4. PIPERACILLIN SODIUM\TAZOBACTAM SODIUM [Concomitant]
     Active Substance: PIPERACILLIN SODIUM\TAZOBACTAM SODIUM
     Dosage: UNK
     Dates: start: 20240325

REACTIONS (3)
  - Febrile neutropenia [Recovered/Resolved]
  - Fatigue [Recovered/Resolved with Sequelae]
  - Neoplasm progression [Recovered/Resolved with Sequelae]

NARRATIVE: CASE EVENT DATE: 20240325
